FAERS Safety Report 12364228 (Version 1)
Quarter: 2016Q2

REPORT INFORMATION
  Report Type: Spontaneous
  Country: US (occurrence: US)
  Receive Date: 20160512
  Receipt Date: 20160512
  Transmission Date: 20160815
  Serious: Yes (Life-Threatening)
  Sender: FDA-Public Use
  Company Number: US-BAYER-2016-088327

PATIENT
  Age: 45 Year
  Sex: Female

DRUGS (2)
  1. ACETYLSALICYLIC ACID({=100 MG) [Suspect]
     Active Substance: ASPIRIN
  2. PRASUGREL [Interacting]
     Active Substance: PRASUGREL

REACTIONS (2)
  - Labelled drug-drug interaction medication error [None]
  - Haemorrhagic cerebral infarction [None]
